FAERS Safety Report 7954502-1 (Version None)
Quarter: 2011Q4

REPORT INFORMATION
  Report Type: 
  Country: None (occurrence: None)
  Receive Date: 20111202
  Receipt Date: 20111122
  Transmission Date: 20120403
  Serious: Yes (Hospitalization)
  Sender: FDA-Public Use
  Company Number: US-JNJFOC-20111109927

PATIENT
  Sex: Female

DRUGS (1)
  1. REMICADE [Suspect]
     Indication: RHEUMATOID ARTHRITIS
     Route: 042
     Dates: start: 20111110

REACTIONS (5)
  - EYE SWELLING [None]
  - ABDOMINAL PAIN [None]
  - INFUSION RELATED REACTION [None]
  - THROAT TIGHTNESS [None]
  - VOMITING [None]
